FAERS Safety Report 5138736-X (Version None)
Quarter: 2006Q4

REPORT INFORMATION
  Report Type: 
  Country: None (occurrence: None)
  Receive Date: 20061030
  Receipt Date: 20061004
  Transmission Date: 20070319
  Serious: Yes (Hospitalization)
  Sender: FDA-Public Use
  Company Number: JP-MERCK-0610USA07325

PATIENT
  Age: 33 Year
  Sex: Male
  Weight: 66 kg

DRUGS (1)
  1. PROPECIA [Suspect]
     Indication: MALE PATTERN BALDNESS
     Route: 048
     Dates: start: 20060601, end: 20061004

REACTIONS (3)
  - ATRIOVENTRICULAR BLOCK [None]
  - ATRIOVENTRICULAR BLOCK THIRD DEGREE [None]
  - SUPRAVENTRICULAR EXTRASYSTOLES [None]
